FAERS Safety Report 12246589 (Version 2)
Quarter: 2016Q2

REPORT INFORMATION
  Report Type: Spontaneous
  Country: US (occurrence: US)
  Receive Date: 20160407
  Receipt Date: 20160407
  Transmission Date: 20160815
  Serious: Yes (Other)
  Sender: FDA-Public Use
  Company Number: US-BAYER-2016-060652

PATIENT
  Age: 21 Year
  Sex: Female

DRUGS (1)
  1. MIRENA [Suspect]
     Active Substance: LEVONORGESTREL
     Dosage: 20 MCG/24HR, CONT
     Route: 015
     Dates: start: 2011, end: 20140120

REACTIONS (4)
  - Premature labour [None]
  - Premature separation of placenta [None]
  - Maternal exposure before pregnancy [None]
  - Device dislocation [None]

NARRATIVE: CASE EVENT DATE: 20140209
